FAERS Safety Report 24545159 (Version 2)
Quarter: 2025Q3

REPORT INFORMATION
  Report Type: Spontaneous
  Country: EU (occurrence: EU)
  Receive Date: 20241024
  Receipt Date: 20250803
  Transmission Date: 20251020
  Serious: Yes (Other)
  Sender: ALEXION PHARMACEUTICALS
  Company Number: EU-ASTRAZENECA-202410EEA006398CZ

PATIENT
  Age: 69 Year
  Sex: Female
  Weight: 60 kg

DRUGS (3)
  1. TAGRISSO [Suspect]
     Active Substance: OSIMERTINIB
     Indication: Lung neoplasm malignant
  2. AMIVANTAMAB [Concomitant]
     Active Substance: AMIVANTAMAB
     Route: 065
  3. AMIVANTAMAB [Concomitant]
     Active Substance: AMIVANTAMAB
     Route: 065

REACTIONS (3)
  - Malignant neoplasm progression [Unknown]
  - Drug resistance mutation [Unknown]
  - Off label use [Unknown]

NARRATIVE: CASE EVENT DATE: 20230701
